FAERS Safety Report 12924393 (Version 2)
Quarter: 2017Q2

REPORT INFORMATION
  Report Type: Report from Study
  Country: BE (occurrence: BE)
  Receive Date: 20161109
  Receipt Date: 20170417
  Transmission Date: 20170830
  Serious: Yes (Hospitalization)
  Sender: FDA-Public Use
  Company Number: PHHY2016BE152097

PATIENT
  Age: 45 Year
  Sex: Female

DRUGS (23)
  1. BACLOFEN. [Concomitant]
     Active Substance: BACLOFEN
     Indication: PRODUCT USED FOR UNKNOWN INDICATION
     Dosage: 10 MG, (1, 5 TABLET IN MORNING 8 AM)
     Route: 048
  2. NEURONTIN [Concomitant]
     Active Substance: GABAPENTIN
     Indication: PRODUCT USED FOR UNKNOWN INDICATION
     Dosage: 4 DF, QD (1 IN MORNING 8 AM, AT NOON 12 PM, IN AFTERNOON 4 PM AND EVENING 8 PM)
     Route: 048
  3. BAKLOFEN MYLAN [Concomitant]
     Active Substance: BACLOFEN
     Indication: PRODUCT USED FOR UNKNOWN INDICATION
     Dosage: 1 DF, UNK
     Route: 048
  4. COVERAM [Concomitant]
     Active Substance: AMLODIPINE\PERINDOPRIL
     Indication: PRODUCT USED FOR UNKNOWN INDICATION
     Dosage: 1 DF, QD (IN MORNING 8 AM)
     Route: 048
  5. MICROLAX                                /DEN/ [Concomitant]
     Indication: CONSTIPATION
     Dosage: MAX. 1 PER DAY, IF NEEDED 1 ENEMA IN THE MORNING (8 AM)
     Route: 054
  6. LORAMET [Concomitant]
     Active Substance: LORMETAZEPAM
     Indication: PRODUCT USED FOR UNKNOWN INDICATION
     Dosage: 1 DF, QD (IN EVENING 8 PM)
     Route: 048
  7. BRUFEN [Concomitant]
     Active Substance: IBUPROFEN
     Indication: PAIN
     Dosage: WHEN HAVING PAIN MAX: 2 DF, IN A DAY, DOSAGE PER DOSE: 1 DF
     Route: 065
  8. ALDACTAZINE [Concomitant]
     Active Substance: ALTHIAZIDE\SPIRONOLACTONE
     Indication: PRODUCT USED FOR UNKNOWN INDICATION
     Dosage: 1 DF, QD (IN MORNING 8 AM)
     Route: 048
  9. LACTULOSE. [Concomitant]
     Active Substance: LACTULOSE
     Indication: PRODUCT USED FOR UNKNOWN INDICATION
     Route: 048
  10. LIOSANNE [Concomitant]
     Indication: PRODUCT USED FOR UNKNOWN INDICATION
     Dosage: 1 DF, QD (IN EVENING 8 PM)
     Route: 048
  11. TOVIAZ [Concomitant]
     Active Substance: FESOTERODINE FUMARATE
     Indication: PRODUCT USED FOR UNKNOWN INDICATION
     Dosage: 1 DF, QD (IN MORNING 8 AM)
     Route: 048
  12. PANTOMED [Concomitant]
     Active Substance: DEXPANTHENOL
     Indication: PRODUCT USED FOR UNKNOWN INDICATION
     Dosage: 20 MG, QD (IN MORNING 8 AM)
     Route: 048
  13. DAFALGAN [Concomitant]
     Active Substance: ACETAMINOPHEN
     Indication: PAIN
     Dosage: WHEN HAVING PAIN MAX: 2 DF, IN A DAY, DOSAGE PER DOSE: 1 DF
     Route: 048
  14. SATIVEX [Concomitant]
     Active Substance: NABIXIMOLS
     Indication: PRODUCT USED FOR UNKNOWN INDICATION
     Dosage: 2.7 MG (1 PRESS)
     Route: 048
  15. SATIVEX [Concomitant]
     Active Substance: NABIXIMOLS
     Dosage: 2.5 MG (1 PRESS)
     Route: 048
  16. JANUMET [Concomitant]
     Active Substance: METFORMIN HYDROCHLORIDE\SITAGLIPTIN PHOSPHATE
     Indication: PRODUCT USED FOR UNKNOWN INDICATION
     Dosage: 1 DF, QD (IN MORNING 8 AM)
     Route: 048
  17. LACRYSTAT [Concomitant]
     Indication: PRODUCT USED FOR UNKNOWN INDICATION
     Dosage: UNK
     Route: 031
  18. MOXONIDINE EG [Concomitant]
     Indication: PRODUCT USED FOR UNKNOWN INDICATION
     Dosage: 1 DF, QD (IN MORNING 8 AM
     Route: 048
  19. BACLOFEN. [Concomitant]
     Active Substance: BACLOFEN
     Dosage: 25 MG, (1 DF IN EVENING 8 PM)
     Route: 048
  20. GILENYA [Suspect]
     Active Substance: FINGOLIMOD HYDROCHLORIDE
     Indication: MULTIPLE SCLEROSIS
     Dosage: 0.5 MG, QD
     Route: 048
     Dates: start: 20140310
  21. ADVANTAN [Concomitant]
     Active Substance: CORTICOSTEROID NOS
     Indication: PRODUCT USED FOR UNKNOWN INDICATION
     Dosage: UNK
     Route: 065
  22. DIASEPTYL [Concomitant]
     Active Substance: CHLORHEXIDINE
     Indication: PRODUCT USED FOR UNKNOWN INDICATION
     Dosage: UNK
     Route: 065
  23. SATIVEX [Concomitant]
     Active Substance: NABIXIMOLS
     Dosage: 5.5 ML (1 PRESS)
     Route: 048

REACTIONS (3)
  - Loss of consciousness [Recovering/Resolving]
  - Fall [Recovering/Resolving]
  - Syncope [Recovering/Resolving]

NARRATIVE: CASE EVENT DATE: 201608
